FAERS Safety Report 23081817 (Version 1)
Quarter: 2023Q4

REPORT INFORMATION
  Report Type: Spontaneous
  Country: US (occurrence: US)
  Receive Date: 20231019
  Receipt Date: 20231019
  Transmission Date: 20240109
  Serious: No
  Sender: FDA-Public Use
  Company Number: US-LEO Pharma-364164

PATIENT
  Age: 19 Year
  Sex: Female

DRUGS (2)
  1. ADBRY [Suspect]
     Active Substance: TRALOKINUMAB-LDRM
     Indication: Product used for unknown indication
     Dosage: EXP JUNE 2024
     Dates: start: 20230808
  2. CETIRIZINE [Concomitant]
     Active Substance: CETIRIZINE HYDROCHLORIDE
     Indication: Product used for unknown indication
     Dosage: USED AS NEEDED

REACTIONS (5)
  - Swelling [Unknown]
  - Injection site swelling [Unknown]
  - Skin discharge [Unknown]
  - Injection site pruritus [Unknown]
  - Pruritus [Unknown]
